FAERS Safety Report 15821335 (Version 1)
Quarter: 2019Q1

REPORT INFORMATION
  Report Type: Report from Study
  Country: CA (occurrence: CA)
  Receive Date: 20190114
  Receipt Date: 20190114
  Transmission Date: 20190417
  Serious: Yes (Hospitalization)
  Sender: FDA-Public Use
  Company Number: CA-PFIZER INC-2019015007

PATIENT
  Age: 52 Year
  Sex: Female

DRUGS (14)
  1. FLUOROURACIL. [Suspect]
     Active Substance: FLUOROURACIL
     Indication: HER-2 POSITIVE BREAST CANCER
     Dosage: UNK
     Route: 042
  2. DEXAMETASON [DEXAMETHASONE] [Concomitant]
     Indication: NAUSEA
     Dosage: 4 MG, 1X/DAY
  3. VITAMIN B [Concomitant]
     Active Substance: VITAMIN B
     Dosage: UNK
  4. ENALAPRIL [Concomitant]
     Active Substance: ENALAPRIL
     Dosage: UNK
  5. NEULASTA [Concomitant]
     Active Substance: PEGFILGRASTIM
     Dosage: UNK
     Route: 058
  6. APREPITANT. [Concomitant]
     Active Substance: APREPITANT
     Indication: NAUSEA
     Dosage: 125 MG, 1X/DAY
  7. MAGNESIUM CITRATE. [Concomitant]
     Active Substance: MAGNESIUM CITRATE
     Dosage: UNK
  8. ROSUVASTATIN. [Concomitant]
     Active Substance: ROSUVASTATIN
     Dosage: UNK
  9. CYCLOPHOSPHAMIDE. [Suspect]
     Active Substance: CYCLOPHOSPHAMIDE
     Indication: HER-2 POSITIVE BREAST CANCER
     Dosage: UNK
     Route: 042
  10. APREPITANT. [Concomitant]
     Active Substance: APREPITANT
     Dosage: 80 MG, 1X/DAY
  11. EPIRUBICIN HCL [Suspect]
     Active Substance: EPIRUBICIN HYDROCHLORIDE
     Indication: HER-2 POSITIVE BREAST CANCER
     Dosage: UNK
     Route: 042
  12. DEXAMETASON [DEXAMETHASONE] [Concomitant]
     Dosage: 8 MG, 1X/DAY
  13. ONDANSETRON [Concomitant]
     Active Substance: ONDANSETRON
     Indication: NAUSEA
     Dosage: UNK
  14. STEMETIL [PROCHLORPERAZINE] [Concomitant]
     Indication: NAUSEA
     Dosage: UNK

REACTIONS (7)
  - Rhinorrhoea [Recovered/Resolved]
  - Asthenia [Recovered/Resolved]
  - Febrile neutropenia [Recovered/Resolved]
  - Oropharyngeal pain [Recovered/Resolved]
  - Pyrexia [Recovered/Resolved]
  - Respiratory syncytial virus infection [Recovered/Resolved]
  - Cough [Recovered/Resolved]
